FAERS Safety Report 8966807 (Version 1)
Quarter: 2012Q4

REPORT INFORMATION
  Report Type: 
  Country: US (occurrence: US)
  Receive Date: 20121217
  Receipt Date: 20121217
  Transmission Date: 20130627
  Serious: Yes (Hospitalization)
  Sender: FDA-Public Use
  Company Number: US-SANOFI-AVENTIS-2012SA091138

PATIENT
  Age: 34 Year
  Sex: Female

DRUGS (4)
  1. ENOXAPARIN SODIUM [Suspect]
     Indication: SUICIDE ATTEMPT
     Route: 065
  2. ENOXAPARIN SODIUM [Suspect]
     Indication: PULMONARY EMBOLISM
     Route: 065
  3. ENOXAPARIN SODIUM [Suspect]
     Indication: SUICIDE ATTEMPT
     Dosage: Injected 20 syringes of 80 mg each
     Route: 065
  4. ENOXAPARIN SODIUM [Suspect]
     Indication: PULMONARY EMBOLISM
     Dosage: Injected 20 syringes of 80 mg each
     Route: 065

REACTIONS (6)
  - Suicide attempt [Unknown]
  - Intentional overdose [Unknown]
  - Retroperitoneal haematoma [Recovering/Resolving]
  - Anti factor X antibody [Recovering/Resolving]
  - Haematocrit decreased [Recovering/Resolving]
  - Activated partial thromboplastin time prolonged [Recovering/Resolving]
